FAERS Safety Report 24022415 (Version 2)
Quarter: 2024Q2

REPORT INFORMATION
  Report Type: Report from Study
  Country: DK (occurrence: DK)
  Receive Date: 20240627
  Receipt Date: 20240628
  Transmission Date: 20240716
  Serious: No
  Sender: FDA-Public Use
  Company Number: DK-ROCHE-3534326

PATIENT
  Age: 59 Year
  Sex: Male

DRUGS (3)
  1. ALECENSA [Suspect]
     Active Substance: ALECTINIB HYDROCHLORIDE
     Indication: Non-small cell lung cancer
     Route: 048
     Dates: start: 20180111
  2. METRONIDAZOLE [Concomitant]
     Active Substance: METRONIDAZOLE
  3. ALBENDAZOLE [Concomitant]
     Active Substance: ALBENDAZOLE

REACTIONS (1)
  - Diarrhoea [Recovered/Resolved]

NARRATIVE: CASE EVENT DATE: 20240302
